FAERS Safety Report 21892900 (Version 1)
Quarter: 2023Q1

REPORT INFORMATION
  Report Type: Spontaneous
  Country: US (occurrence: US)
  Receive Date: 20230120
  Receipt Date: 20230120
  Transmission Date: 20230418
  Serious: No
  Sender: FDA-Public Use
  Company Number: US-JAZZ-2022-US-035902

PATIENT
  Sex: Female
  Weight: 112 kg

DRUGS (14)
  1. XYWAV [Suspect]
     Active Substance: CALCIUM OXYBATE\MAGNESIUM OXYBATE\POTASSIUM OXYBATE\SODIUM OXYBATE
     Indication: Hypersomnia
     Dosage: 4.5 GRAM, BID
     Dates: start: 20220527
  2. ACARBOSE [Concomitant]
     Active Substance: ACARBOSE
     Dosage: UNK
  3. ACETAZOLAMIDE [Concomitant]
     Active Substance: ACETAZOLAMIDE
     Dosage: UNK
  4. BUPROPION [Concomitant]
     Active Substance: BUPROPION
  5. BUSPIRONE [Concomitant]
     Active Substance: BUSPIRONE HYDROCHLORIDE
  6. FIORICET [Concomitant]
     Active Substance: ACETAMINOPHEN\BUTALBITAL\CAFFEINE
  7. ADDERALL [Concomitant]
     Active Substance: AMPHETAMINE ASPARTATE\AMPHETAMINE SULFATE\DEXTROAMPHETAMINE SACCHARATE\DEXTROAMPHETAMINE SULFATE
  8. DULOXETINE [Concomitant]
     Active Substance: DULOXETINE
  9. LEVOTHYROXINE [Concomitant]
     Active Substance: LEVOTHYROXINE
  10. VICTOZA [Concomitant]
     Active Substance: LIRAGLUTIDE
  11. METFORMIN [Concomitant]
     Active Substance: METFORMIN HYDROCHLORIDE
     Dosage: UNK
  12. PREGABALIN [Concomitant]
     Active Substance: PREGABALIN
  13. SUMATRIPTAN [Concomitant]
     Active Substance: SUMATRIPTAN
  14. ZONISAMIDE [Concomitant]
     Active Substance: ZONISAMIDE

REACTIONS (1)
  - Parasomnia [Unknown]
